FAERS Safety Report 8313951-2 (Version None)
Quarter: 2012Q2

REPORT INFORMATION
  Report Type: 
  Country: None (occurrence: None)
  Receive Date: 20120426
  Receipt Date: 20110808
  Transmission Date: 20120825
  Serious: Yes (Other)
  Sender: FDA-Public Use
  Company Number: US-TEVA-US021934

PATIENT
  Sex: Male

DRUGS (4)
  1. LAMICTAL [Suspect]
     Route: 065
     Dates: start: 20060101, end: 20061001
  2. PROVIGIL [Suspect]
     Dosage: 200-400MG QD
     Route: 048
     Dates: start: 20071201
  3. BENADRYL [Suspect]
     Indication: RASH
     Route: 065
     Dates: start: 20061007
  4. PROVIGIL [Suspect]
     Indication: ATTENTION DEFICIT/HYPERACTIVITY DISORDER
     Dosage: 200-400MG QD
     Route: 048
     Dates: start: 20060301, end: 20061101

REACTIONS (2)
  - HALLUCINATION, VISUAL [None]
  - RASH [None]
